FAERS Safety Report 13106637 (Version 2)
Quarter: 2017Q1

REPORT INFORMATION
  Report Type: Spontaneous
  Country: US (occurrence: US)
  Receive Date: 20170111
  Receipt Date: 20170201
  Transmission Date: 20170428
  Serious: Yes (Other)
  Sender: FDA-Public Use
  Company Number: US-LUNDBECK-DKLU2024779

PATIENT
  Age: 7 Year
  Sex: Male

DRUGS (3)
  1. SABRIL [Suspect]
     Active Substance: VIGABATRIN
     Route: 065
     Dates: start: 201701
  2. SABRIL [Suspect]
     Active Substance: VIGABATRIN
     Indication: COMPLEX PARTIAL SEIZURES
     Route: 065
     Dates: start: 20140730, end: 201612
  3. SABRIL [Suspect]
     Active Substance: VIGABATRIN
     Route: 065
     Dates: start: 201701

REACTIONS (2)
  - Infantile spasms [Unknown]
  - Drug withdrawal convulsions [Unknown]

NARRATIVE: CASE EVENT DATE: 20170123
